FAERS Safety Report 21851853 (Version 2)
Quarter: 2023Q1

REPORT INFORMATION
  Report Type: Report from Study
  Country: US (occurrence: US)
  Receive Date: 20230112
  Receipt Date: 20230318
  Transmission Date: 20230418
  Serious: No
  Sender: FDA-Public Use
  Company Number: US-ABBVIE-4226353

PATIENT
  Sex: Male

DRUGS (2)
  1. SKYRIZI [Suspect]
     Active Substance: RISANKIZUMAB-RZAA
     Indication: Psoriasis
     Dosage: FORM STRENGTH 150 MG?WEEK 4
     Route: 058
     Dates: start: 20220406
  2. SKYRIZI [Suspect]
     Active Substance: RISANKIZUMAB-RZAA
     Indication: Psoriasis
     Dosage: WEEK 0?FORM STRENGTH 150 MG
     Route: 058
     Dates: start: 2022, end: 2022

REACTIONS (3)
  - Therapeutic product effect decreased [Not Recovered/Not Resolved]
  - Off label use [Unknown]
  - Psoriasis [Unknown]
